FAERS Safety Report 13238079 (Version 1)
Quarter: 2017Q1

REPORT INFORMATION
  Report Type: Report from Study
  Country: None (occurrence: BR)
  Receive Date: 20170216
  Receipt Date: 20170216
  Transmission Date: 20170428
  Serious: Yes (Other)
  Sender: FDA-Public Use
  Company Number: BR-ABBVIE-17P-020-1872546-00

PATIENT
  Age: 40 Year
  Sex: Female
  Weight: 65 kg

DRUGS (3)
  1. HUMIRA [Suspect]
     Active Substance: ADALIMUMAB
     Indication: CROHN^S DISEASE
     Route: 058
     Dates: start: 20161023, end: 20170102
  2. POLYVITAMIN [Concomitant]
     Active Substance: VITAMINS
     Indication: CROHN^S DISEASE
     Route: 048
     Dates: start: 20170128
  3. SIMBIOFLORA [Concomitant]
     Indication: DYSBACTERIOSIS
     Route: 048
     Dates: start: 20170126, end: 20170205

REACTIONS (6)
  - Fistula [Unknown]
  - Abscess [Unknown]
  - Suture rupture [Unknown]
  - Intestinal fistula infection [Unknown]
  - Contusion [Not Recovered/Not Resolved]
  - Abscess [Not Recovered/Not Resolved]

NARRATIVE: CASE EVENT DATE: 20170114
